FAERS Safety Report 5225902-8 (Version None)
Quarter: 2007Q1

REPORT INFORMATION
  Report Type: 
  Country: None (occurrence: None)
  Receive Date: 20070201
  Receipt Date: 20070129
  Transmission Date: 20070707
  Serious: Yes (Hospitalization)
  Sender: FDA-Public Use
  Company Number: JP-BAYER-200611227BYL

PATIENT
  Age: 63 Year
  Sex: Male
  Weight: 65 kg

DRUGS (4)
  1. GLUCOBAY [Suspect]
     Indication: DIABETES MELLITUS
     Dosage: TOTAL DAILY DOSE: 150 MG  UNIT DOSE: 50 MG
     Route: 048
     Dates: start: 20060605, end: 20061023
  2. AMARYL [Concomitant]
     Indication: DIABETES MELLITUS
     Dosage: TOTAL DAILY DOSE: 3 MG
     Route: 048
     Dates: start: 20040729, end: 20061023
  3. MEVALOTIN [Concomitant]
     Indication: HYPERLIPIDAEMIA
     Dosage: TOTAL DAILY DOSE: 10 MG
     Route: 048
     Dates: start: 20040729, end: 20061023
  4. DIOVAN [Concomitant]
     Indication: HYPERTENSION
     Dosage: TOTAL DAILY DOSE: 80 MG
     Route: 048
     Dates: start: 20040729, end: 20061023

REACTIONS (2)
  - LIVER DISORDER [None]
  - PNEUMONIA [None]
